FAERS Safety Report 14627036 (Version 5)
Quarter: 2018Q2

REPORT INFORMATION
  Report Type: Spontaneous
  Country: CH (occurrence: CH)
  Receive Date: 20180312
  Receipt Date: 20180412
  Transmission Date: 20180711
  Serious: Yes (Hospitalization, Disabling, Other)
  Sender: FDA-Public Use
  Company Number: CH-JNJFOC-20180310297

PATIENT
  Age: 43 Year
  Sex: Male
  Weight: 89 kg

DRUGS (15)
  1. DARUNAVIR [Suspect]
     Active Substance: DARUNAVIR
     Indication: HIV INFECTION
     Route: 048
     Dates: start: 20161024
  2. VITAMIN D [Concomitant]
     Active Substance: CHOLECALCIFEROL
     Route: 065
  3. CREON [Concomitant]
     Active Substance: PANCRELIPASE AMYLASE\PANCRELIPASE LIPASE\PANCRELIPASE PROTEASE
     Route: 065
     Dates: start: 20171106
  4. GENVOYA [Suspect]
     Active Substance: COBICISTAT\ELVITEGRAVIR\EMTRICITABINE\TENOFOVIR ALAFENAMIDE FUMARATE
     Indication: HIV INFECTION
     Route: 065
     Dates: start: 20161025
  5. CEFTRIAXON [Concomitant]
     Active Substance: CEFTRIAXONE
     Route: 065
     Dates: start: 20170109
  6. IMODIUM [Concomitant]
     Active Substance: LOPERAMIDE HYDROCHLORIDE
     Route: 065
  7. REYATAZ [Concomitant]
     Active Substance: ATAZANAVIR SULFATE
     Route: 065
     Dates: start: 200908, end: 201604
  8. TRUVADA [Suspect]
     Active Substance: EMTRICITABINE\TENOFOVIR DISOPROXIL FUMARATE
     Indication: HIV INFECTION
     Route: 065
     Dates: start: 20090804, end: 20161024
  9. PANTOZOL [Concomitant]
     Active Substance: PANTOPRAZOLE SODIUM
     Route: 065
     Dates: start: 20161024, end: 20171123
  10. NORVIR [Suspect]
     Active Substance: RITONAVIR
     Indication: HIV INFECTION
     Route: 065
     Dates: start: 20161024
  11. TARDOCILLIN [Concomitant]
     Active Substance: PENICILLIN G BENZATHINE
     Route: 065
     Dates: start: 20160404
  12. FLUARIX TETRA [Concomitant]
     Route: 065
  13. AZITHROMYCIN ANHYDROUS. [Concomitant]
     Active Substance: AZITHROMYCIN ANHYDROUS
     Route: 065
     Dates: start: 20170109
  14. REVAXIS [Concomitant]
     Active Substance: DIPHTHERIA AND TETANUS TOXOIDS AND POLIOVIRUS VACCINE ANTIGENS
     Route: 065
     Dates: start: 20171204
  15. PREVENAR [Concomitant]
     Active Substance: PNEUMOCOCCAL 7-VALENT CONJUGATE VACCINE (DIPHTHERIA CRM197 PROTEIN)
     Route: 065
     Dates: start: 20171204

REACTIONS (7)
  - Colitis [Recovered/Resolved]
  - Abdominal distension [Unknown]
  - Abnormal faeces [Not Recovered/Not Resolved]
  - Weight decreased [Unknown]
  - Abdominal pain [Not Recovered/Not Resolved]
  - Diarrhoea [Not Recovered/Not Resolved]
  - Renal tubular disorder [Not Recovered/Not Resolved]

NARRATIVE: CASE EVENT DATE: 2016
